FAERS Safety Report 5579288-X (Version None)
Quarter: 2008Q1

REPORT INFORMATION
  Report Type: 
  Country: None (occurrence: None)
  Receive Date: 20080102
  Receipt Date: 20071220
  Transmission Date: 20080703
  Serious: Yes (Other)
  Sender: FDA-Public Use
  Company Number: FR-TYCO HEALTHCARE/MALLINCKRODT-T200701594

PATIENT

DRUGS (2)
  1. LIQUID BAROSPERSE [Suspect]
     Indication: X-RAY WITH CONTRAST UPPER GASTROINTESTINAL TRACT
     Route: 048
  2. LIQUID BAROSPERSE [Suspect]
     Indication: X-RAY WITH CONTRAST LOWER GASTROINTESTINAL TRACT

REACTIONS (3)
  - CONTRAST MEDIA REACTION [None]
  - POISONING [None]
  - TOXIC ENCEPHALOPATHY [None]
